FAERS Safety Report 4463691-5 (Version None)
Quarter: 2004Q3

REPORT INFORMATION
  Report Type: 
  Country: None (occurrence: None)
  Receive Date: 20040929
  Receipt Date: 20040916
  Transmission Date: 20050211
  Serious: Yes (Hospitalization)
  Sender: FDA-Public Use
  Company Number: 2004234209SE

PATIENT
  Age: 75 Year
  Sex: Female

DRUGS (10)
  1. PREDNISOLONE [Suspect]
     Indication: RHEUMATOID ARTHRITIS
     Dosage: 7.5 MG, QD, ORAL
     Route: 048
  2. ASPIRIN [Suspect]
     Indication: AMAUROSIS
     Dosage: 160 MG, QD, ORAL
     Route: 048
     Dates: end: 20040712
  3. FOLACIN (CALCIUM PHOSPHATE) [Concomitant]
  4. ACETAMINOPHEN [Concomitant]
  5. THEO-DUR [Concomitant]
  6. PULMICORT [Concomitant]
  7. BRICANYL [Concomitant]
  8. METHOTREXATE [Concomitant]
  9. DEXOFEN (DEXTROPOXYPHENE NAPSILATE) [Concomitant]
  10. OXIS (FORMOTEROL) [Concomitant]

REACTIONS (3)
  - ANAEMIA [None]
  - HAEMATOCHEZIA [None]
  - HAEMORRHAGE [None]
